FAERS Safety Report 20036276 (Version 2)
Quarter: 2021Q4

REPORT INFORMATION
  Report Type: Report from Study
  Country: ES (occurrence: None)
  Receive Date: 20211105
  Receipt Date: 20211124
  Transmission Date: 20220303
  Serious: Yes (Hospitalization)
  Sender: FDA-Public Use
  Company Number: ES-ROCHE-2935633

PATIENT
  Age: 55 Year
  Sex: Female
  Weight: 57.4 kg

DRUGS (5)
  1. ATEZOLIZUMAB [Suspect]
     Active Substance: ATEZOLIZUMAB
     Indication: Ovarian cancer recurrent
     Dosage: ON 08/OCT/2021, RECEIVED MOST RECENT DOSE OF BLINDED ATEZOLIZUMAB BEFORE EVENT.
     Route: 041
     Dates: start: 20210702
  2. BEVACIZUMAB [Suspect]
     Active Substance: BEVACIZUMAB
     Indication: Ovarian cancer recurrent
     Dosage: ON 08/OCT/2021, RECEIVED MOST RECENT DOSE OF BEVACIZUMAB BEFORE EVENT.
     Route: 042
     Dates: start: 20210702
  3. PACLITAXEL [Suspect]
     Active Substance: PACLITAXEL
     Indication: Ovarian cancer recurrent
     Dosage: ON 08/OCT/2021, RECEIVED MOST RECENT DOSE OF PACLITAXEL BEFORE EVENT.
     Route: 042
     Dates: start: 20210702
  4. OMEPRAZOLE [Concomitant]
     Active Substance: OMEPRAZOLE
     Indication: Prophylaxis
     Route: 048
     Dates: start: 20210629
  5. METOCLOPRAMIDE [Concomitant]
     Active Substance: METOCLOPRAMIDE
     Indication: Prophylaxis
     Dates: start: 20201220

REACTIONS (2)
  - Appendicitis perforated [Recovered/Resolved]
  - Peritonitis [Recovered/Resolved]

NARRATIVE: CASE EVENT DATE: 20211012
